FAERS Safety Report 18376917 (Version 1)
Quarter: 2020Q4

REPORT INFORMATION
  Report Type: Spontaneous
  Country: US (occurrence: US)
  Receive Date: 20201013
  Receipt Date: 20201013
  Transmission Date: 20210114
  Serious: No
  Sender: FDA-Public Use
  Company Number: US-GLAXOSMITHKLINE-US2020200781

PATIENT
  Sex: Male

DRUGS (1)
  1. INCRUSE ELLIPTA [Suspect]
     Active Substance: UMECLIDINIUM BROMIDE
     Indication: LUNG DISORDER
     Dosage: 1 PUFF(S), 1D
     Route: 055

REACTIONS (2)
  - Prescription drug used without a prescription [Unknown]
  - Drug ineffective [Unknown]
